FAERS Safety Report 5247565-8 (Version None)
Quarter: 2007Q1

REPORT INFORMATION
  Report Type: 
  Country: None (occurrence: None)
  Receive Date: 20070227
  Receipt Date: 20070213
  Transmission Date: 20070707
  Serious: Yes (Other)
  Sender: FDA-Public Use
  Company Number: PHBS2007JP02880

PATIENT
  Sex: Female

DRUGS (2)
  1. ASPIRIN [Concomitant]
  2. LUDIOMIL [Suspect]
     Route: 048
     Dates: start: 20061001, end: 20070120

REACTIONS (2)
  - CHEST X-RAY ABNORMAL [None]
  - PNEUMONIA [None]
